FAERS Safety Report 4996401-3 (Version None)
Quarter: 2006Q2

REPORT INFORMATION
  Report Type: 
  Country: None (occurrence: None)
  Receive Date: 20060505
  Receipt Date: 20060426
  Transmission Date: 20061013
  Serious: Yes (Hospitalization)
  Sender: FDA-Public Use
  Company Number: MEDI-0004525

PATIENT
  Age: 7 Month

DRUGS (6)
  1. SYNAGIS [Suspect]
     Indication: ANTIVIRAL PROPHYLAXIS
     Dosage: 1 IN 30 D; INTRAMUSCULAR
     Route: 030
     Dates: start: 20051012, end: 20060209
  2. SYNAGIS [Suspect]
     Indication: ANTIVIRAL PROPHYLAXIS
     Dosage: 1 IN 30 D; INTRAMUSCULAR
     Route: 030
     Dates: start: 20060310, end: 20060310
  3. SYNAGIS [Suspect]
     Indication: ANTIVIRAL PROPHYLAXIS
     Dosage: 1 IN 30 D; INTRAMUSCULAR
     Route: 030
     Dates: start: 20051012
  4. SYNAGIS [Suspect]
     Indication: ANTIVIRAL PROPHYLAXIS
     Dosage: 1 IN 30 D; INTRAMUSCULAR
     Route: 030
     Dates: start: 20051110
  5. SYNAGIS [Suspect]
     Indication: ANTIVIRAL PROPHYLAXIS
     Dosage: 1 IN 30 D; INTRAMUSCULAR
     Route: 030
     Dates: start: 20051209
  6. SYNAGIS [Suspect]
     Indication: ANTIVIRAL PROPHYLAXIS
     Dosage: 1 IN 30 D; INTRAMUSCULAR
     Route: 030
     Dates: start: 20060109

REACTIONS (1)
  - BRONCHIOLITIS [None]
